FAERS Safety Report 8275321-5 (Version None)
Quarter: 2012Q2

REPORT INFORMATION
  Report Type: 
  Country: None (occurrence: None)
  Receive Date: 20120411
  Receipt Date: 20120327
  Transmission Date: 20120825
  Serious: Yes (Congenital Anomaly)
  Sender: FDA-Public Use
  Company Number: US-ROCHE-GNE311204

PATIENT

DRUGS (3)
  1. OMALIZUMAB [Suspect]
     Indication: ASTHMA
     Dosage: 375 MG, Q3W
     Route: 064
     Dates: start: 20090304, end: 20091201
  2. TYLENOL (CAPLET) [Concomitant]
     Indication: PROCEDURAL PAIN
     Dosage: UNK
     Route: 048
     Dates: start: 20101122, end: 20101126
  3. IBUPROFEN [Concomitant]
     Indication: PROCEDURAL PAIN
     Dosage: UNK
     Route: 048
     Dates: start: 20101122, end: 20101126

REACTIONS (2)
  - HAEMANGIOMA [None]
  - MATERNAL EXPOSURE TIMING UNSPECIFIED [None]
